FAERS Safety Report 7571834-X (Version None)
Quarter: 2011Q2

REPORT INFORMATION
  Report Type: 
  Country: None (occurrence: None)
  Receive Date: 20110624
  Receipt Date: 20110615
  Transmission Date: 20111010
  Serious: Yes (Hospitalization)
  Sender: FDA-Public Use
  Company Number: JP-AMGEN-JPNCT2010004379

PATIENT
  Age: 77 Year
  Sex: Male

DRUGS (4)
  1. LEUCOVORIN CALCIUM [Concomitant]
     Dosage: UNK
     Dates: start: 20100929
  2. PANITUMUMAB [Suspect]
     Indication: COLORECTAL CANCER
     Dosage: UNK UNK, Q2WK
     Route: 041
     Dates: start: 20100929
  3. FLUOROURACIL [Concomitant]
     Dosage: UNK
     Dates: start: 20100929
  4. OXALIPLATIN [Concomitant]
     Dosage: UNK
     Dates: start: 20100929

REACTIONS (1)
  - SHOCK [None]
